FAERS Safety Report 13221874 (Version 1)
Quarter: 2017Q1

REPORT INFORMATION
  Report Type: Spontaneous
  Country: US (occurrence: US)
  Receive Date: 20170211
  Receipt Date: 20170211
  Transmission Date: 20170428
  Serious: Yes (Other)
  Sender: FDA-Public Use
  Company Number: US-SUNOVION-2017SUN000520

PATIENT

DRUGS (5)
  1. BROVANA [Suspect]
     Active Substance: ARFORMOTEROL TARTRATE
     Dosage: UNK, BID
     Route: 055
  2. ALBUTEROL. [Concomitant]
     Active Substance: ALBUTEROL
     Dosage: UNK
  3. BUDESONIDE. [Concomitant]
     Active Substance: BUDESONIDE
     Dosage: UNK UNK, BID
     Route: 055
  4. BUDESONIDE. [Concomitant]
     Active Substance: BUDESONIDE
     Dosage: UNK (EVERY 4 HOURS AS NEEDED FOR LABORED BREATHING)
     Route: 055
  5. BROVANA [Suspect]
     Active Substance: ARFORMOTEROL TARTRATE
     Dosage: UNK (EVERY 4 HOURS FOR LABORED BREATHING)
     Route: 055

REACTIONS (5)
  - Amnesia [Unknown]
  - Oxygen saturation decreased [Unknown]
  - Dementia [Unknown]
  - Aphasia [Unknown]
  - Dyspnoea [Unknown]
